FAERS Safety Report 8920791 (Version 1)
Quarter: 2012Q4

REPORT INFORMATION
  Report Type: Report from Study
  Country: DE (occurrence: DE)
  Receive Date: 20121121
  Receipt Date: 20121121
  Transmission Date: 20130627
  Serious: Yes (Other)
  Sender: FDA-Public Use
  Company Number: DE-GLAXOSMITHKLINE-B0670567B

PATIENT
  Age: 66 Year
  Sex: Female

DRUGS (5)
  1. LAPATINIB [Suspect]
     Indication: BREAST CANCER
     Dosage: 1500MG per day
     Route: 048
     Dates: start: 20100722
  2. PACLITAXEL [Suspect]
     Indication: BREAST CANCER
     Dosage: 80MGM Cyclic
     Route: 042
     Dates: start: 20100722
  3. 5FU [Suspect]
     Indication: BREAST CANCER
     Dates: start: 20101104
  4. EPIRUBICIN [Suspect]
     Indication: BREAST CANCER
     Route: 042
     Dates: start: 20101104
  5. CYCLOPHOSPHAMIDE [Suspect]
     Indication: BREAST CANCER
     Route: 042
     Dates: start: 20101104

REACTIONS (4)
  - Neutropenia [Recovered/Resolved]
  - Neutropenia [Recovered/Resolved]
  - Neutropenia [Recovered/Resolved]
  - Neutropenia [Recovered/Resolved]
